FAERS Safety Report 19009828 (Version 1)
Quarter: 2021Q1

REPORT INFORMATION
  Report Type: Spontaneous
  Country: US (occurrence: US)
  Receive Date: 20210315
  Receipt Date: 20210315
  Transmission Date: 20210420
  Serious: Yes (Hospitalization)
  Sender: FDA-Public Use
  Company Number: US-GW PHARMA-202103USGW01078

PATIENT

DRUGS (2)
  1. EPIDIOLEX [Suspect]
     Active Substance: CANNABIDIOL
     Dosage: DOUBLE DOSE BY ACCIDENT, 600 MILLIGRAM, BID
     Route: 048
     Dates: start: 20210305, end: 20210305
  2. EPIDIOLEX [Suspect]
     Active Substance: CANNABIDIOL
     Indication: LENNOX-GASTAUT SYNDROME
     Dosage: 300 MILLIGRAM, BID
     Route: 048
     Dates: start: 20190417, end: 20210304

REACTIONS (3)
  - Extra dose administered [Recovered/Resolved]
  - Incorrect dosage administered [Recovered/Resolved]
  - Seizure [Recovered/Resolved]

NARRATIVE: CASE EVENT DATE: 20210305
